FAERS Safety Report 18234398 (Version 2)
Quarter: 2020Q3

REPORT INFORMATION
  Report Type: Spontaneous
  Country: JP (occurrence: JP)
  Receive Date: 20200904
  Receipt Date: 20200918
  Transmission Date: 20201103
  Serious: Yes (Hospitalization)
  Sender: FDA-Public Use
  Company Number: JP-MALLINCKRODT-T202004209

PATIENT
  Age: 77 Year
  Sex: Female

DRUGS (6)
  1. PANTETHINE [Concomitant]
     Active Substance: PANTETHINE
     Indication: CONSTIPATION
     Dosage: 300 MILLIGRAM, DAILY
     Route: 048
     Dates: start: 20200312, end: 20200817
  2. QUETIAPINE. [Concomitant]
     Active Substance: QUETIAPINE
     Indication: BIPOLAR DISORDER
     Dosage: 50 MILLIGRAM, DAILY
     Route: 048
     Dates: start: 20200129, end: 20200817
  3. AMITIZA [Suspect]
     Active Substance: LUBIPROSTONE
     Indication: CONSTIPATION
     Dosage: 48 MICROGRAM, DAILY
     Route: 048
     Dates: start: 20200423, end: 20200817
  4. SAWACILLIN [Suspect]
     Active Substance: AMOXICILLIN
     Indication: CHOLANGITIS
     Dosage: 1000 MILLIGRAM, DAILY
     Route: 048
     Dates: start: 20191016, end: 20200817
  5. GOOFICE [Concomitant]
     Active Substance: ELOBIXIBAT
     Indication: CONSTIPATION
     Dosage: 10 MILLIGRAM, DAILY
     Route: 048
     Dates: start: 20200514, end: 20200817
  6. AUGMENTIN [Suspect]
     Active Substance: AMOXICILLIN\CLAVULANATE POTASSIUM
     Indication: CHOLANGITIS
     Dosage: 1000 MILLIGRAM, DAILY
     Route: 048
     Dates: start: 20191016, end: 20200817

REACTIONS (1)
  - Wernicke^s encephalopathy [Recovered/Resolved with Sequelae]

NARRATIVE: CASE EVENT DATE: 202007
